FAERS Safety Report 11335964 (Version 1)
Quarter: 2015Q3

REPORT INFORMATION
  Report Type: Spontaneous
  Country: SE (occurrence: SE)
  Receive Date: 20150804
  Receipt Date: 20150804
  Transmission Date: 20151125
  Serious: Yes (Other)
  Sender: FDA-Public Use
  Company Number: SE-TEVA-583070ISR

PATIENT
  Age: 38 Year
  Sex: Female

DRUGS (3)
  1. SERTRALINE [Suspect]
     Active Substance: SERTRALINE HYDROCHLORIDE
     Route: 048
  2. ERGENYL PER ORAL [Suspect]
     Active Substance: VALPROIC ACID
     Route: 048
  3. LITHIONIT PER ORAL [Suspect]
     Active Substance: LITHIUM SULFATE
     Route: 048

REACTIONS (3)
  - Peroneal nerve palsy [Not Recovered/Not Resolved]
  - Paresis [Not Recovered/Not Resolved]
  - Folate deficiency [Not Recovered/Not Resolved]
